FAERS Safety Report 5932574-3 (Version None)
Quarter: 2008Q4

REPORT INFORMATION
  Report Type: 
  Country: None (occurrence: None)
  Receive Date: 20081009
  Receipt Date: 20071018
  Transmission Date: 20090506
  Serious: Yes (Other)
  Sender: FDA-Public Use
  Company Number: PHEH2007US13859

PATIENT
  Age: 45 Year
  Sex: Female

DRUGS (1)
  1. ZOMETA [Suspect]
     Indication: BREAST CANCER
     Dosage: 4 MG Q4W, INTRAVENOUS
     Route: 042
     Dates: start: 20040101, end: 20070801

REACTIONS (2)
  - BONE DISORDER [None]
  - OSTEONECROSIS [None]
